FAERS Safety Report 10623013 (Version 1)
Quarter: 2014Q4

REPORT INFORMATION
  Report Type: Spontaneous
  Country: US (occurrence: US)
  Receive Date: 20141203
  Receipt Date: 20141203
  Transmission Date: 20150529
  Serious: No
  Sender: FDA-Public Use
  Company Number: US-SHIRE-US201408047

PATIENT

DRUGS (1)
  1. VYVANSE [Suspect]
     Active Substance: LISDEXAMFETAMINE DIMESYLATE
     Indication: DRUG DIVERSION
     Dosage: 70 MG, ONE DOSE
     Route: 048
     Dates: start: 2014, end: 2014

REACTIONS (2)
  - Tremor [Not Recovered/Not Resolved]
  - Drug diversion [Recovered/Resolved]

NARRATIVE: CASE EVENT DATE: 2014
